FAERS Safety Report 9377116 (Version 1)
Quarter: 2013Q3

REPORT INFORMATION
  Report Type: Spontaneous
  Country: US (occurrence: US)
  Receive Date: 20130701
  Receipt Date: 20130701
  Transmission Date: 20140515
  Serious: Yes (Other)
  Sender: FDA-Public Use
  Company Number: US-PFIZER INC-2013193145

PATIENT
  Age: 91 Year
  Sex: Female
  Weight: 47.62 kg

DRUGS (2)
  1. TOVIAZ [Suspect]
     Indication: HYPERTONIC BLADDER
     Dosage: 4 MG, UNK
     Route: 048
     Dates: end: 2013
  2. TOVIAZ [Suspect]
     Dosage: 8 MG, UNK
     Route: 048
     Dates: start: 2013

REACTIONS (3)
  - Cerebrovascular accident [Unknown]
  - Visual acuity reduced [Unknown]
  - Drug ineffective [Unknown]
